FAERS Safety Report 18277132 (Version 1)
Quarter: 2020Q3

REPORT INFORMATION
  Report Type: Spontaneous
  Country: US (occurrence: US)
  Receive Date: 20200916
  Receipt Date: 20200916
  Transmission Date: 20201103
  Serious: Yes (Hospitalization)
  Sender: FDA-Public Use
  Company Number: None

PATIENT
  Sex: Female

DRUGS (17)
  1. AMOXICILLIN. [Concomitant]
     Active Substance: AMOXICILLIN
  2. PROMETH/COD [Concomitant]
  3. SPIRONOLACT [Concomitant]
     Active Substance: SPIRONOLACTONE
  4. DIGOXIN. [Concomitant]
     Active Substance: DIGOXIN
  5. FAMOTIDINE. [Concomitant]
     Active Substance: FAMOTIDINE
  6. NARCAN [Concomitant]
     Active Substance: NALOXONE HYDROCHLORIDE
  7. TRAMADOL HCL [Concomitant]
     Active Substance: TRAMADOL HYDROCHLORIDE
  8. DULOXETINE. [Concomitant]
     Active Substance: DULOXETINE
  9. VITAMIN D [Concomitant]
     Active Substance: VITAMIN D NOS
  10. AMBRISENTAN 10MG TAB [Suspect]
     Active Substance: AMBRISENTAN
     Indication: PULMONARY ARTERIAL HYPERTENSION
     Route: 048
     Dates: start: 20190119
  11. TADALAFIL. [Concomitant]
     Active Substance: TADALAFIL
  12. METRONIDAZOL [Concomitant]
     Active Substance: METRONIDAZOLE
  13. FUROSEMIDE. [Concomitant]
     Active Substance: FUROSEMIDE
  14. HYDROCO/APAP [Concomitant]
     Active Substance: ACETAMINOPHEN\HYDROCODONE
  15. DIAZEPAM. [Concomitant]
     Active Substance: DIAZEPAM
  16. CLINDAMYCIN. [Concomitant]
     Active Substance: CLINDAMYCIN
  17. METHYLPRED [Concomitant]
     Active Substance: METHYLPREDNISOLONE

REACTIONS (2)
  - Injury [None]
  - Fall [None]
